FAERS Safety Report 8088925 (Version 3)
Quarter: 2013Q4

REPORT INFORMATION
  Report Type: Report from Study
  Country: IT (occurrence: IT)
  Receive Date: 20110812
  Receipt Date: 20131017
  Transmission Date: 20140711
  Serious: Yes (Death, Other)
  Sender: FDA-Public Use
  Company Number: IT-CELGENEUS-083-21880-11061374

PATIENT
  Sex: 0

DRUGS (3)
  1. REVLIMID [Suspect]
     Indication: PLASMA CELL LEUKAEMIA
     Dosage: 25 MILLIGRAM
     Route: 048
  2. REVLIMID [Suspect]
     Dosage: 10 MILLIGRAM
     Route: 048
  3. DEXAMETHASONE [Suspect]
     Indication: PLASMA CELL LEUKAEMIA
     Dosage: 40 MILLIGRAM
     Route: 048

REACTIONS (27)
  - Faecalith [Unknown]
  - Gastric ulcer [Unknown]
  - Hyperglycaemia [Unknown]
  - Multi-organ failure [Unknown]
  - Gastrointestinal disorder [Unknown]
  - Death [Fatal]
  - Renal failure acute [Unknown]
  - Stevens-Johnson syndrome [Unknown]
  - Pneumonia [Unknown]
  - Haematotoxicity [Unknown]
  - Deep vein thrombosis [Unknown]
  - Neutropenia [Unknown]
  - Embolism [Unknown]
  - Hypercalcaemia [Unknown]
  - Extrapyramidal disorder [Unknown]
  - Insomnia [Unknown]
  - Disease progression [Unknown]
  - Condition aggravated [Unknown]
  - Infection [Unknown]
  - Renal failure [Unknown]
  - Metabolic disorder [Unknown]
  - Rash [Unknown]
  - Fatigue [Unknown]
  - Lung infection [Unknown]
  - Cytomegalovirus infection [Unknown]
  - Diarrhoea [Unknown]
  - Hypocalcaemia [Unknown]
